FAERS Safety Report 5764467-9 (Version None)
Quarter: 2008Q2

REPORT INFORMATION
  Report Type: 
  Country: None (occurrence: None)
  Receive Date: 20080610
  Receipt Date: 20080529
  Transmission Date: 20081010
  Serious: Yes (Hospitalization, Other)
  Sender: FDA-Public Use
  Company Number: US-PFIZER INC-2004048907

PATIENT
  Sex: Female

DRUGS (66)
  1. NEURONTIN [Suspect]
     Indication: BIPOLAR DISORDER
     Dates: start: 19990318, end: 20020201
  2. CEFALEXIN [Concomitant]
     Dosage: FREQ:UNKNOWN
     Route: 065
  3. WARFARIN SODIUM [Concomitant]
     Dosage: FREQ:UNKNOWN
     Route: 065
  4. PHENYLPROPANOLAMINE [Concomitant]
     Dosage: FREQ:UNKNOWN
     Route: 065
  5. CYPROHEPTADINE HYDROCHLORIDE [Concomitant]
     Dosage: FREQ:UNKNOWN
     Route: 065
  6. YOHIMBINE [Concomitant]
     Dosage: FREQ:UNKNOWN
     Route: 065
  7. CETIRIZINE HYDROCHLORIDE [Concomitant]
     Dosage: FREQ:UNKNOWN
     Route: 065
  8. ADAPALENE [Concomitant]
     Dosage: FREQ:UNKNOWN
     Route: 065
  9. MELOXICAM [Concomitant]
     Dosage: FREQ:UNKNOWN
     Route: 065
  10. ARIPIPRAZOLE [Concomitant]
     Dosage: FREQ:UNKNOWN
     Route: 065
  11. KETOROLAC TROMETHAMINE [Concomitant]
     Dosage: FREQ:UNKNOWN
     Route: 065
  12. DICHLORALPHENAZONE AND ISOMETHEPTENE MUCATE AND PARACETAMOL [Concomitant]
     Dosage: FREQ:UNKNOWN
     Route: 065
  13. CLONAZEPAM [Concomitant]
     Dosage: FREQ:UNKNOWN
     Route: 065
  14. OLANZAPINE [Concomitant]
     Dosage: FREQ:UNKNOWN
     Route: 065
  15. ZOLPIDEM TARTRATE [Concomitant]
     Dosage: FREQ:UNKNOWN
     Route: 065
  16. FLUOXETINE HYDROCHLORIDE [Concomitant]
     Dosage: FREQ:UNKNOWN
     Route: 065
  17. RALOXIFENE HYDROCHLORIDE [Concomitant]
     Dosage: FREQ:UNKNOWN
     Route: 065
  18. LITHIUM CARBONATE [Concomitant]
     Dosage: FREQ:UNKNOWN
     Route: 065
  19. TRAMADOL HYDROCHLORIDE [Concomitant]
     Dosage: FREQ:UNKNOWN
     Route: 065
  20. ATENOLOL [Concomitant]
     Dosage: FREQ:UNKNOWN
     Route: 065
  21. TRAZODONE [Concomitant]
     Dosage: FREQ:UNKNOWN
     Route: 065
  22. DEXTROPROPOXYPHENE NAPSILATE AND PARACETAMOL [Concomitant]
     Dosage: FREQ:UNKNOWN
     Route: 065
  23. ESTROGENS ESTERIFIED AND METHYLTESTOSTERONE [Concomitant]
     Dosage: FREQ:UNKNOWN
     Route: 065
  24. ESTRADIOL [Concomitant]
     Dosage: FREQ:UNKNOWN
     Route: 065
  25. VENLAFAXINE HYDROCHLORIDE [Concomitant]
     Dosage: FREQ:UNKNOWN
     Route: 065
  26. NEFAZODONE HYDROCHLORIDE [Concomitant]
     Dosage: FREQ:UNKNOWN
     Route: 065
  27. ZOLMITRIPTAN [Concomitant]
     Dosage: FREQ:UNKNOWN
     Route: 065
  28. SODIUM FLUORIDE [Concomitant]
     Dosage: FREQ:UNKNOWN
     Route: 065
  29. AMOXICILLIN [Concomitant]
     Dosage: FREQ:UNKNOWN
     Route: 065
  30. PETHIDINE AND PROMETHAZINE [Concomitant]
     Dosage: FREQ:UNKNOWN
     Route: 065
  31. AZITHROMYCIN [Concomitant]
     Dosage: FREQ:UNKNOWN
     Route: 065
  32. DEXTROMETHORPHAN AND GUAIFENESIN AND PHENYLPROPANOLAMINE [Concomitant]
     Dosage: FREQ:UNKNOWN
     Route: 065
  33. PREDNISONE [Concomitant]
     Dosage: FREQ:UNKNOWN
     Route: 065
  34. PRAVASTATIN SODIUM [Concomitant]
     Dosage: FREQ:UNKNOWN
     Route: 065
  35. CLINDAMYCIN [Concomitant]
     Dosage: FREQ:UNKNOWN
     Route: 065
  36. CHLORHEXIDINE [Concomitant]
     Dosage: FREQ:UNKNOWN
     Route: 065
  37. HYDROCODONE BITARTRATE AND PARACETAMOL [Concomitant]
     Dosage: FREQ:UNKNOWN
     Route: 065
  38. DOCUSATE SODIUM [Concomitant]
     Dosage: FREQ:UNKNOWN
     Route: 065
  39. RISPERIDONE [Concomitant]
     Dosage: FREQ:UNKNOWN
     Route: 065
  40. MIRTAZAPINE [Concomitant]
     Dosage: FREQ:UNKNOWN
     Route: 065
  41. BUPROPION HYDROCHLORIDE [Concomitant]
     Dosage: FREQ:UNKNOWN
     Route: 065
  42. PROPRANOLOL HYDROCHLORIDE [Concomitant]
     Dosage: FREQ:UNKNOWN
     Route: 065
  43. SUMATRIPTAN SUCCINATE [Concomitant]
     Dosage: FREQ:UNKNOWN
     Route: 065
  44. METHOCARBAMOL [Concomitant]
     Dosage: FREQ:UNKNOWN
     Route: 065
  45. NAPROXEN [Concomitant]
     Dosage: FREQ:UNKNOWN
     Route: 065
  46. LORATADINE AND PSEUDOEPHEDRINE SULFATE [Concomitant]
     Dosage: FREQ:UNKNOWN
     Route: 065
  47. TEMAZEPAM [Concomitant]
     Dosage: FREQ:UNKNOWN
     Route: 065
  48. QUETIAPINE FUMARATE [Concomitant]
     Dosage: FREQ:UNKNOWN
     Route: 065
  49. CODEINE PHOSPHATE AND GUAIFENESIN AND PHENIRAMINE MALEATE [Concomitant]
     Dosage: FREQ:UNKNOWN
     Route: 065
  50. FLURAZEPAM HYDROCHLORIDE [Concomitant]
     Dosage: FREQ:UNKNOWN
     Route: 065
  51. MOMETASONE FUROATE [Concomitant]
     Dosage: FREQ:UNKNOWN
     Route: 065
  52. ADAPALENE [Concomitant]
     Dosage: FREQ:UNKNOWN
     Route: 065
  53. CHLORPHENAMINE TANNATE AND MEPYRAMINE TANNATE AND PHENYLEPHRINE TANNAT [Concomitant]
     Dosage: FREQ:UNKNOWN
     Route: 065
  54. MODAFINIL [Concomitant]
     Dosage: FREQ:UNKNOWN
     Route: 065
  55. TIZANIDINE HYDROCHLORIDE [Concomitant]
     Dosage: FREQ:UNKNOWN
     Route: 065
  56. ESTROGENS CONJUGATED [Concomitant]
     Dosage: FREQ:UNKNOWN
     Route: 065
  57. ESTRADIOL [Concomitant]
     Dosage: FREQ:UNKNOWN
     Route: 065
  58. TIAGABINE HYDROCHLORIDE [Concomitant]
     Dosage: FREQ:UNKNOWN
     Route: 065
  59. SILDENAFIL CITRATE [Concomitant]
     Dosage: FREQ:UNKNOWN
     Route: 065
  60. BUTORPHANOL TARTRATE [Concomitant]
     Dosage: FREQ:UNKNOWN
     Route: 065
  61. TRIMETHOBENZAMIDE HYDROCHLORIDE [Concomitant]
     Dosage: FREQ:UNKNOWN
     Route: 065
  62. LITHIUM CARBONATE [Concomitant]
     Dosage: FREQ:UNKNOWN
     Route: 065
  63. VALPROATE SEMISODIUM [Concomitant]
     Dosage: FREQ:UNKNOWN
     Route: 065
  64. BECLOMETASONE DIPROPIONATE [Concomitant]
     Dosage: FREQ:UNKNOWN
     Route: 065
  65. AMOXICILLIN TRIHYDRATE AND CLAVULANATE POTASSIUM [Concomitant]
     Dosage: FREQ:UNKNOWN
     Route: 048
  66. DICHLORALPHENAZONE AND ISOMETHEPTENE AND PARACETAMOL [Concomitant]
     Dosage: FREQ:UNKNOWN
     Route: 065

REACTIONS (41)
  - ABDOMINAL INJURY [None]
  - ABDOMINAL PAIN [None]
  - ADVERSE EVENT [None]
  - AGITATION [None]
  - ANXIETY [None]
  - ATRIAL FIBRILLATION [None]
  - BIPOLAR DISORDER [None]
  - BLOOD CALCIUM DECREASED [None]
  - CHEST PAIN [None]
  - CONFUSIONAL STATE [None]
  - DEPENDENCE ON RESPIRATOR [None]
  - DEPRESSION [None]
  - DIAPHRAGMATIC INJURY [None]
  - DRUG SCREEN POSITIVE [None]
  - DYSPHAGIA [None]
  - FAECALOMA [None]
  - HAEMATOCRIT DECREASED [None]
  - HAEMOGLOBIN DECREASED [None]
  - HAEMOTHORAX [None]
  - HALLUCINATIONS, MIXED [None]
  - INJURY [None]
  - INSOMNIA [None]
  - INTERCOSTAL NEURALGIA [None]
  - KLEPTOMANIA [None]
  - MALNUTRITION [None]
  - NEPHROGENIC DIABETES INSIPIDUS [None]
  - OBSESSIVE-COMPULSIVE DISORDER [None]
  - PAIN [None]
  - PERICARDIAL EFFUSION [None]
  - PHYSICAL DISABILITY [None]
  - PNEUMATOSIS INTESTINALIS [None]
  - PNEUMONIA [None]
  - PNEUMOTHORAX [None]
  - PULMONARY EMBOLISM [None]
  - SCAR [None]
  - SEDATION [None]
  - SEXUAL DYSFUNCTION [None]
  - SUICIDAL IDEATION [None]
  - SUICIDE ATTEMPT [None]
  - TRAUMATIC LIVER INJURY [None]
  - TRAUMATIC SHOCK [None]
